FAERS Safety Report 12626087 (Version 1)
Quarter: 2016Q3

REPORT INFORMATION
  Report Type: Spontaneous
  Country: CA (occurrence: CA)
  Receive Date: 20160805
  Receipt Date: 20160805
  Transmission Date: 20161109
  Serious: Yes (Other)
  Sender: FDA-Public Use
  Company Number: CA-PFIZER INC-3044183

PATIENT
  Age: 41 Year
  Sex: Female

DRUGS (7)
  1. METHOTREXATE SODIUM. [Suspect]
     Active Substance: METHOTREXATE SODIUM
     Indication: RHEUMATOID ARTHRITIS
     Dosage: 20 MG, FREQ: 1 WEEK ; INTERVAL: 1
     Route: 065
     Dates: start: 20091120, end: 20131101
  2. SIMPONI [Suspect]
     Active Substance: GOLIMUMAB
     Indication: RHEUMATOID ARTHRITIS
     Dosage: 50 MG, FREQ: 1 WEEK ; INTERVAL: 4
     Route: 058
     Dates: start: 20140401, end: 20150901
  3. ARAVA [Concomitant]
     Active Substance: LEFLUNOMIDE
     Indication: RHEUMATOID ARTHRITIS
     Dosage: DAILY
     Route: 065
  4. PLAQUENIL [Suspect]
     Active Substance: HYDROXYCHLOROQUINE SULFATE
     Indication: RHEUMATOID ARTHRITIS
     Dosage: 200 MG, FREQ: 1 DAY; INTERVAL: 1
     Route: 065
     Dates: start: 20100219, end: 20131101
  5. ENBREL [Suspect]
     Active Substance: ETANERCEPT
     Indication: RHEUMATOID ARTHRITIS
     Dosage: 50 MG, FREQ: 1 WEEK ; INTERVAL: 1
     Route: 058
     Dates: start: 20121115, end: 20140201
  6. LEFLUNOMIDE. [Suspect]
     Active Substance: LEFLUNOMIDE
     Indication: RHEUMATOID ARTHRITIS
     Dosage: 20 MG, FREQ: 1 DAY ; INTERVAL: 1
     Route: 065
     Dates: start: 20110107
  7. CELEBREX [Concomitant]
     Active Substance: CELECOXIB
     Indication: RHEUMATOID ARTHRITIS
     Dosage: DAILY

REACTIONS (8)
  - Migraine [Unknown]
  - Mobility decreased [Unknown]
  - Dysstasia [Unknown]
  - Pain [Unknown]
  - Nausea [Unknown]
  - Malaise [Unknown]
  - Rheumatoid arthritis [Unknown]
  - Drug ineffective [Unknown]

NARRATIVE: CASE EVENT DATE: 2015
